FAERS Safety Report 25439274 (Version 1)
Quarter: 2025Q2

REPORT INFORMATION
  Report Type: Spontaneous
  Country: CN (occurrence: CN)
  Receive Date: 20250616
  Receipt Date: 20250616
  Transmission Date: 20250717
  Serious: Yes (Other)
  Sender: SANDOZ
  Company Number: CN-002147023-NVSC2025CN092920

PATIENT
  Age: 23 Year
  Sex: Female
  Weight: 51 kg

DRUGS (4)
  1. DEXAMETHASONE\TOBRAMYCIN [Suspect]
     Active Substance: DEXAMETHASONE\TOBRAMYCIN
     Dosage: 1 DRP, QD
     Route: 047
  2. DEXAMETHASONE\TOBRAMYCIN [Suspect]
     Active Substance: DEXAMETHASONE\TOBRAMYCIN
     Indication: Blepharitis
     Dosage: 1 DRP, TID
     Route: 047
     Dates: start: 20250423, end: 20250425
  3. FLUOROMETHOLONE [Concomitant]
     Active Substance: FLUOROMETHOLONE
     Indication: Xerophthalmia
     Dosage: 1 DRP, QID
     Route: 047
     Dates: start: 20250423, end: 20250425
  4. FLUOROMETHOLONE [Concomitant]
     Active Substance: FLUOROMETHOLONE
     Dosage: 1 DRP, QID
     Route: 047

REACTIONS (3)
  - Dry eye [Recovering/Resolving]
  - Vision blurred [Recovering/Resolving]
  - Astigmatism [Recovering/Resolving]

NARRATIVE: CASE EVENT DATE: 20250401
